FAERS Safety Report 8765586 (Version 1)
Quarter: 2012Q4

REPORT INFORMATION
  Report Type: 
  Country: US (occurrence: US)
  Receive Date: 20120903
  Receipt Date: 20120903
  Transmission Date: 20130627
  Serious: Yes (Hospitalization)
  Sender: FDA-Public Use
  Company Number: US-BRISTOL-MYERS SQUIBB COMPANY-16890329

PATIENT
  Age: 61 Year
  Sex: Male
  Weight: 127 kg

DRUGS (14)
  1. METOPROLOL TARTRATE [Suspect]
  2. PLAVIX [Suspect]
     Indication: CORONARY ARTERIAL STENT INSERTION
     Dates: start: 200402, end: 201207
  3. METOLAZONE [Concomitant]
  4. LASIX [Concomitant]
     Dosage: 1 or 2 daily
  5. KLOR-CON [Concomitant]
  6. RANEXA [Concomitant]
  7. ISOSORBIDE MONONITRATE [Concomitant]
  8. AMLODIPINE BESYLATE [Concomitant]
  9. WARFARIN [Concomitant]
  10. CRESTOR [Concomitant]
  11. DOXAZOSIN MESYLATE [Concomitant]
  12. RAMIPRIL [Concomitant]
  13. LANTUS [Concomitant]
     Indication: TYPE 2 DIABETES MELLITUS
  14. NOVOLOG [Concomitant]
     Indication: TYPE 2 DIABETES MELLITUS

REACTIONS (1)
  - Vascular graft occlusion [Unknown]
